FAERS Safety Report 20453950 (Version 1)
Quarter: 2022Q1

REPORT INFORMATION
  Report Type: Spontaneous
  Country: US (occurrence: None)
  Receive Date: 20220210
  Receipt Date: 20220210
  Transmission Date: 20220423
  Serious: No
  Sender: FDA-Public Use
  Company Number: US-ALM-HQ-US-2021-2407

PATIENT
  Sex: Female

DRUGS (1)
  1. KLISYRI [Suspect]
     Active Substance: TIRBANIBULIN
     Indication: Actinic keratosis
     Dosage: APPLIED 1 PACKET TO THE CHEST DECOLLETAGE
     Route: 061
     Dates: start: 20211121, end: 20211126

REACTIONS (6)
  - Application site paraesthesia [Recovering/Resolving]
  - Application site erythema [Recovering/Resolving]
  - Application site vesicles [Recovered/Resolved]
  - Application site pain [Recovered/Resolved]
  - Application site dryness [Recovering/Resolving]
  - Application site exfoliation [Recovering/Resolving]
